FAERS Safety Report 17305847 (Version 1)
Quarter: 2020Q1

REPORT INFORMATION
  Report Type: Spontaneous
  Country: US (occurrence: US)
  Receive Date: 20200123
  Receipt Date: 20200123
  Transmission Date: 20200409
  Serious: No
  Sender: FDA-Public Use
  Company Number: US-009507513-2001USA006788

PATIENT
  Age: 35 Year
  Sex: Female

DRUGS (10)
  1. FOLLISTIM AQ [Suspect]
     Active Substance: FOLLITROPIN
  2. ENDOMETRIN [Concomitant]
     Active Substance: PROGESTERONE
  3. LEVOTHYROXINE SODIUM. [Concomitant]
     Active Substance: LEVOTHYROXINE SODIUM
  4. MENOPUR [Concomitant]
     Active Substance: FOLLITROPIN\LUTEINIZING HORMONE
  5. AZITHROMYCIN ANHYDROUS. [Concomitant]
     Active Substance: AZITHROMYCIN ANHYDROUS
  6. LEUPROLIDE [Concomitant]
     Active Substance: LEUPROLIDE
  7. FOLLISTIM AQ [Suspect]
     Active Substance: FOLLITROPIN
     Indication: INFERTILITY FEMALE
     Dosage: 225 UNITS, QD, STRENGTH: 900 IU/1.08 ML
     Route: 058
     Dates: start: 20191214
  8. PREGNYL [Concomitant]
     Active Substance: CHORIOGONADOTROPIN ALFA
  9. GANIRELIX ACETATE INJECTION [Suspect]
     Active Substance: GANIRELIX ACETATE
     Indication: INFERTILITY FEMALE
     Dosage: 250 MICROGRAM, QD
     Route: 058
     Dates: start: 20191214
  10. ESTRADIOL. [Concomitant]
     Active Substance: ESTRADIOL

REACTIONS (3)
  - Injection site hypersensitivity [Unknown]
  - Injection site erythema [Unknown]
  - Injection site pain [Unknown]

NARRATIVE: CASE EVENT DATE: 202001
